FAERS Safety Report 8892261 (Version 1)
Quarter: 2012Q4

REPORT INFORMATION
  Report Type: Spontaneous
  Country: US (occurrence: None)
  Receive Date: 20121105
  Receipt Date: 20121105
  Transmission Date: 20130627
  Serious: Yes (Other)
  Sender: FDA-Public Use
  Company Number: None

PATIENT
  Age: 47 Year
  Sex: Female
  Weight: 65.77 kg

DRUGS (1)
  1. DOXYCYCLINE HYCLATE [Suspect]
     Indication: DENTAL DISORDER PROPHYLAXIS
     Dosage: 12 2 STAT; \THENL DAILY
     Route: 048
     Dates: start: 20121101, end: 20121103

REACTIONS (1)
  - Haematochezia [None]
